FAERS Safety Report 8498630-3 (Version None)
Quarter: 2012Q3

REPORT INFORMATION
  Report Type: 
  Country: None (occurrence: None)
  Receive Date: 20120709
  Receipt Date: 20120628
  Transmission Date: 20120928
  Serious: No
  Sender: FDA-Public Use
  Company Number: US-AMGEN-USASP2012040201

PATIENT
  Age: 68 Year
  Sex: Female

DRUGS (1)
  1. ENBREL [Suspect]
     Indication: PRODUCT USED FOR UNKNOWN INDICATION
     Dosage: 50 MG, QWK
     Dates: start: 20111001

REACTIONS (9)
  - FEELING HOT [None]
  - PAIN [None]
  - INFLUENZA LIKE ILLNESS [None]
  - PRURITUS [None]
  - INJECTION SITE RASH [None]
  - BODY TEMPERATURE INCREASED [None]
  - FATIGUE [None]
  - GASTROINTESTINAL DISORDER [None]
  - INJECTION SITE ERYTHEMA [None]
